FAERS Safety Report 12858868 (Version 1)
Quarter: 2016Q4

REPORT INFORMATION
  Report Type: Spontaneous
  Country: US (occurrence: US)
  Receive Date: 20161018
  Receipt Date: 20161018
  Transmission Date: 20170207
  Serious: Yes (Other)
  Sender: FDA-Public Use
  Company Number: US-ELI_LILLY_AND_COMPANY-US201607003156

PATIENT
  Sex: Female
  Weight: 46 kg

DRUGS (7)
  1. KCL [Concomitant]
     Active Substance: POTASSIUM CHLORIDE
  2. SPIRONOLACTONE. [Concomitant]
     Active Substance: SPIRONOLACTONE
  3. ADCIRCA [Suspect]
     Active Substance: TADALAFIL
     Indication: PULMONARY ARTERIAL HYPERTENSION
     Dosage: 40 MG, QD
     Route: 048
     Dates: start: 201405
  4. DIGOXIN. [Concomitant]
     Active Substance: DIGOXIN
  5. ASA [Concomitant]
     Active Substance: ASPIRIN
     Dosage: 81 MG, UNK
  6. FUROSEMIDE. [Concomitant]
     Active Substance: FUROSEMIDE
  7. LAMICTAL [Concomitant]
     Active Substance: LAMOTRIGINE

REACTIONS (1)
  - Menorrhagia [Recovered/Resolved]
